FAERS Safety Report 24395612 (Version 1)
Quarter: 2024Q4

REPORT INFORMATION
  Report Type: Spontaneous
  Country: US (occurrence: US)
  Receive Date: 20241004
  Receipt Date: 20241004
  Transmission Date: 20250115
  Serious: Yes (Other)
  Sender: AUROBINDO
  Company Number: US-AUROBINDO-AUR-APL-2024-047668

PATIENT
  Age: 60 Year
  Sex: Female

DRUGS (3)
  1. METHOTREXATE [Suspect]
     Active Substance: METHOTREXATE
     Indication: Ocular pemphigoid
     Dosage: (FOR 4 YEARS)
     Route: 065
  2. LOTEPREDNOL ETABONATE [Suspect]
     Active Substance: LOTEPREDNOL ETABONATE
     Indication: Ocular pemphigoid
     Dosage: (FOR 4 YEARS)
     Route: 061
  3. TACROLIMUS [Suspect]
     Active Substance: TACROLIMUS
     Indication: Ocular pemphigoid
     Dosage: (FOR 4 YEARS)
     Route: 061

REACTIONS (2)
  - Sebaceous carcinoma [Unknown]
  - Condition aggravated [Unknown]
